FAERS Safety Report 25987269 (Version 1)
Quarter: 2025Q4

REPORT INFORMATION
  Report Type: Spontaneous
  Country: GB (occurrence: GB)
  Receive Date: 20251103
  Receipt Date: 20251103
  Transmission Date: 20260117
  Serious: Yes (Hospitalization, Other)
  Sender: ALKEM
  Company Number: None

PATIENT
  Sex: Male
  Weight: 79 kg

DRUGS (1)
  1. IBUPROFEN [Suspect]
     Active Substance: IBUPROFEN
     Indication: Abdominal pain upper
     Dosage: UNK (2 IBUPROFEN FOR LAST 2 DAYS EVERY 4-6 HOURS)
     Route: 065
     Dates: start: 202509

REACTIONS (3)
  - Gastric ulcer [Not Recovered/Not Resolved]
  - Medication error [Unknown]
  - Melaena [Unknown]

NARRATIVE: CASE EVENT DATE: 20250901
